FAERS Safety Report 8544635-3 (Version None)
Quarter: 2012Q3

REPORT INFORMATION
  Report Type: 
  Country: None (occurrence: None)
  Receive Date: 20120727
  Receipt Date: 20120723
  Transmission Date: 20120928
  Serious: Yes (Hospitalization)
  Sender: FDA-Public Use
  Company Number: CN-SANOFI-AVENTIS-2012SA052513

PATIENT
  Age: 73 Year
  Sex: Male
  Weight: 66 kg

DRUGS (3)
  1. PLAVIX [Suspect]
     Indication: ACUTE MYOCARDIAL INFARCTION
     Route: 048
     Dates: start: 20090115, end: 20090120
  2. HEPARIN [Suspect]
     Indication: ANTICOAGULANT THERAPY
     Route: 065
     Dates: end: 20090120
  3. PLAVIX [Suspect]
     Route: 048
     Dates: start: 20090115, end: 20090120

REACTIONS (2)
  - COAGULATION TIME PROLONGED [None]
  - HAEMATURIA [None]
